FAERS Safety Report 6382005-7 (Version None)
Quarter: 2009Q3

REPORT INFORMATION
  Report Type: 
  Country: None (occurrence: None)
  Receive Date: 20090930
  Receipt Date: 20090922
  Transmission Date: 20100115
  Serious: Yes (Hospitalization)
  Sender: FDA-Public Use
  Company Number: US-BAYER-200931751NA

PATIENT
  Age: 43 Year
  Sex: Female
  Weight: 61 kg

DRUGS (3)
  1. MIRENA [Suspect]
     Indication: CONTRACEPTION
     Dosage: CONTINUOUS
     Route: 015
     Dates: start: 20090803, end: 20090822
  2. ORAL CONTRACEPTIVE NOS [Concomitant]
  3. IUD NOS [Concomitant]

REACTIONS (3)
  - ABDOMINAL PAIN LOWER [None]
  - OVARIAN CYST [None]
  - TUBO-OVARIAN ABSCESS [None]
